FAERS Safety Report 24961039 (Version 1)
Quarter: 2025Q1

REPORT INFORMATION
  Report Type: Spontaneous
  Country: US (occurrence: None)
  Receive Date: 20250212
  Receipt Date: 20250212
  Transmission Date: 20250408
  Serious: Yes (Other)
  Sender: FDA-CTU
  Company Number: None

PATIENT
  Age: 34 Year
  Sex: Male
  Weight: 58.5 kg

DRUGS (1)
  1. CLONAZEPAM [Suspect]
     Active Substance: CLONAZEPAM
     Indication: Panic attack
     Route: 048
     Dates: start: 20250101, end: 20250130

REACTIONS (3)
  - Incorrect dose administered [None]
  - Product dispensing error [None]
  - Anxiety [None]

NARRATIVE: CASE EVENT DATE: 20250101
